FAERS Safety Report 8918384 (Version 2)
Quarter: 2014Q2

REPORT INFORMATION
  Report Type: Spontaneous
  Country: US (occurrence: US)
  Receive Date: 20121120
  Receipt Date: 20131018
  Transmission Date: 20141212
  Serious: Yes (Other)
  Sender: FDA-Public Use
  Company Number: US-PFIZER INC-2012286825

PATIENT
  Age: 59 Year
  Sex: Female
  Weight: 57.14 kg

DRUGS (3)
  1. PREMPRO [Suspect]
     Indication: HORMONE REPLACEMENT THERAPY
     Dosage: 0.3/1.5 MG, DAILY
     Dates: start: 2000
  2. SYMBICORT [Concomitant]
     Indication: CHRONIC OBSTRUCTIVE PULMONARY DISEASE
     Dosage: UNK, AS NEEDED
  3. CLONAZEPAM [Concomitant]
     Indication: PANIC DISORDER
     Dosage: 0.5 MG, 2X/DAY

REACTIONS (1)
  - Haemorrhage urinary tract [Recovered/Resolved]
